FAERS Safety Report 14376758 (Version 3)
Quarter: 2018Q1

REPORT INFORMATION
  Report Type: Spontaneous
  Country: JP (occurrence: JP)
  Receive Date: 20180111
  Receipt Date: 20180223
  Transmission Date: 20180509
  Serious: Yes (Other)
  Sender: FDA-Public Use
  Company Number: JP-PFIZER INC-2018010448

PATIENT
  Age: 49 Year
  Sex: Male

DRUGS (3)
  1. LYRICA [Suspect]
     Active Substance: PREGABALIN
     Indication: INTERVERTEBRAL DISC PROTRUSION
     Dosage: 75 MG, 1X/DAY BEFORE BED
     Route: 048
     Dates: start: 20171226
  2. CELECOX [Suspect]
     Active Substance: CELECOXIB
     Indication: INTERVERTEBRAL DISC PROTRUSION
     Dosage: 1 DF, 2X/DAY
     Route: 048
     Dates: start: 20171226
  3. REBAMIPIDE [Concomitant]
     Active Substance: REBAMIPIDE

REACTIONS (4)
  - Erythema [Unknown]
  - Swelling face [Unknown]
  - Mouth swelling [Recovering/Resolving]
  - Skin ulcer [Unknown]

NARRATIVE: CASE EVENT DATE: 20180101
